FAERS Safety Report 8479131 (Version 2)
Quarter: 2013Q2

REPORT INFORMATION
  Report Type: Report from Study
  Country: GB (occurrence: GB)
  Receive Date: 20120327
  Receipt Date: 20130424
  Transmission Date: 20140414
  Serious: Yes (Hospitalization)
  Sender: FDA-Public Use
  Company Number: PHHO2011GB05920

PATIENT
  Age: 13 Year
  Sex: Female
  Weight: 56.4 kg

DRUGS (2)
  1. ACZ885 [Suspect]
     Indication: JUVENILE IDIOPATHIC ARTHRITIS
     Dosage: 225 MG, UNK
     Route: 058
     Dates: start: 20110221
  2. CHEMOTHERAPEUTICS NOS [Concomitant]

REACTIONS (1)
  - Histiocytosis haematophagic [Recovering/Resolving]
